FAERS Safety Report 6467895-1 (Version None)
Quarter: 2009Q4

REPORT INFORMATION
  Report Type: 
  Country: None (occurrence: None)
  Receive Date: 20091202
  Receipt Date: 20091124
  Transmission Date: 20100525
  Serious: Yes (Hospitalization)
  Sender: FDA-Public Use
  Company Number: DE-WYE-G04973509

PATIENT
  Age: 40 Year
  Sex: Female
  Weight: 60 kg

DRUGS (5)
  1. VENLAFAXINE HCL [Suspect]
     Dosage: OVERDOSE AMOUNT MAX. 6000 MG
     Route: 048
     Dates: start: 20091124, end: 20091124
  2. TRIMIPRAMINE [Suspect]
     Dosage: OVERDOSE AMOUNT MAX. 5000 MG
     Route: 048
     Dates: start: 20091124, end: 20091124
  3. PROMETHAZINE [Suspect]
     Dosage: OVERDOSE AMOUNT MAX. 2500 MG
     Route: 048
     Dates: start: 20091124, end: 20091124
  4. DIHYDROERGOTAMINE [Suspect]
     Dosage: OVERDOSE AMOUNT MAX. 4500 MG
     Route: 048
     Dates: start: 20091124, end: 20091124
  5. LORAZEPAM [Suspect]
     Dosage: OVERDOSE AMOUNT MAX. 50 MG
     Route: 048
     Dates: start: 20091124, end: 20091124

REACTIONS (6)
  - BRADYCARDIA [None]
  - COMA [None]
  - HYPOTENSION [None]
  - INTENTIONAL OVERDOSE [None]
  - RESPIRATORY DEPRESSION [None]
  - SUICIDE ATTEMPT [None]
